FAERS Safety Report 6267227-8 (Version None)
Quarter: 2009Q3

REPORT INFORMATION
  Report Type: 
  Country: None (occurrence: None)
  Receive Date: 20090714
  Receipt Date: 20090706
  Transmission Date: 20100115
  Serious: Yes (Other)
  Sender: FDA-Public Use
  Company Number: US-BAYER-200912014BCC

PATIENT
  Age: 38 Year
  Sex: Female
  Weight: 59 kg

DRUGS (3)
  1. MIDOL [Suspect]
     Indication: HEADACHE
     Dosage: TOTAL DAILY DOSE: 220 MG  UNIT DOSE: 220 MG
     Route: 048
     Dates: start: 20090702
  2. PROTONICS [Concomitant]
     Indication: DRUG USE FOR UNKNOWN INDICATION
     Route: 065
     Dates: start: 20090630, end: 20090701
  3. 24 FE LOW ESTRIN BIRTH CONTROL PILL [Concomitant]
     Indication: DRUG USE FOR UNKNOWN INDICATION
     Dosage: TOTAL DAILY DOSE: 1 DF
     Route: 048

REACTIONS (9)
  - ASTHENIA [None]
  - DIZZINESS [None]
  - DYSARTHRIA [None]
  - GAIT DISTURBANCE [None]
  - HEADACHE [None]
  - LETHARGY [None]
  - LOSS OF CONSCIOUSNESS [None]
  - MOBILITY DECREASED [None]
  - OPIATES POSITIVE [None]
